FAERS Safety Report 15260355 (Version 1)
Quarter: 2018Q3

REPORT INFORMATION
  Report Type: Spontaneous
  Country: US (occurrence: US)
  Receive Date: 20180719
  Receipt Date: 20180719
  Transmission Date: 20181010
  Serious: Yes (Hospitalization)
  Sender: FDA-Public Use
  Company Number: None

PATIENT
  Age: 53 Year
  Sex: Female
  Weight: 50.6 kg

DRUGS (1)
  1. PAZOPANIB (GW786034) [Suspect]
     Active Substance: PAZOPANIB
     Dates: end: 20180709

REACTIONS (10)
  - Cervical vertebral fracture [None]
  - Urinary incontinence [None]
  - Fractured sacrum [None]
  - Thoracic vertebral fracture [None]
  - Metastases to pelvis [None]
  - Nerve compression [None]
  - Anal incontinence [None]
  - Metastases to spine [None]
  - Spinal column stenosis [None]
  - Spinal fracture [None]

NARRATIVE: CASE EVENT DATE: 20180709
